FAERS Safety Report 9611027 (Version 2)
Quarter: 2013Q4

REPORT INFORMATION
  Report Type: Spontaneous
  Country: JP (occurrence: JP)
  Receive Date: 20131009
  Receipt Date: 20131030
  Transmission Date: 20140711
  Serious: Yes (Other)
  Sender: FDA-Public Use
  Company Number: JP-GLAXOSMITHKLINE-B0928347A

PATIENT
  Age: 5 Decade
  Sex: Male

DRUGS (1)
  1. VOTRIENT 200MG [Suspect]
     Indication: SOFT TISSUE CANCER
     Route: 048

REACTIONS (1)
  - Intestinal obstruction [Unknown]
